FAERS Safety Report 14767697 (Version 4)
Quarter: 2019Q2

REPORT INFORMATION
  Report Type: Report from Study
  Country: AU (occurrence: AU)
  Receive Date: 20180417
  Receipt Date: 20190612
  Transmission Date: 20190711
  Serious: Yes (Congenital Anomaly)
  Sender: FDA-Public Use
  Company Number: AU-UCBSA-2018016521

PATIENT

DRUGS (1)
  1. LEVETIRACETAM. [Suspect]
     Active Substance: LEVETIRACETAM
     Indication: EPILEPSY
     Dosage: UNK
     Route: 064

REACTIONS (2)
  - Foetal malformation [Not Recovered/Not Resolved]
  - Maternal exposure during pregnancy [Unknown]
